FAERS Safety Report 19704350 (Version 9)
Quarter: 2022Q2

REPORT INFORMATION
  Report Type: Spontaneous
  Country: US (occurrence: US)
  Receive Date: 20210816
  Receipt Date: 20220629
  Transmission Date: 20220721
  Serious: No
  Sender: FDA-Public Use
  Company Number: US-PHARMING-PHAUS2021000398

PATIENT

DRUGS (5)
  1. RUCONEST [Suspect]
     Active Substance: HUMAN C1-ESTERASE INHIBITOR
     Indication: Hereditary angioedema
     Dosage: 4200 IU, WEEKLY AND PRN
     Route: 042
     Dates: start: 20210625
  2. RUCONEST [Suspect]
     Active Substance: HUMAN C1-ESTERASE INHIBITOR
     Indication: Hereditary angioedema
     Dosage: 4200 IU, WEEKLY AND AS NEEDED
     Route: 042
     Dates: start: 20210625
  3. RUCONEST [Suspect]
     Active Substance: HUMAN C1-ESTERASE INHIBITOR
     Dosage: 4200 IU, WEEKLY AND AS NEEDED
     Route: 042
     Dates: start: 20210625
  4. RUCONEST [Suspect]
     Active Substance: HUMAN C1-ESTERASE INHIBITOR
     Dosage: 4200 IU, WEEKLY AND PRN
     Route: 042
     Dates: start: 20210625
  5. RUCONEST [Suspect]
     Active Substance: HUMAN C1-ESTERASE INHIBITOR
     Dosage: 4200 IU, WEEKLY AND PRN
     Route: 042
     Dates: start: 20210625

REACTIONS (3)
  - Intentional product use issue [Unknown]
  - Weight fluctuation [Unknown]
  - Condition aggravated [Unknown]
